FAERS Safety Report 7668264-9 (Version None)
Quarter: 2011Q3

REPORT INFORMATION
  Report Type: 
  Country: None (occurrence: None)
  Receive Date: 20110808
  Receipt Date: 20110729
  Transmission Date: 20111222
  Serious: Yes (Hospitalization, Other)
  Sender: FDA-Public Use
  Company Number: JP-JNJFOC-20110602529

PATIENT
  Sex: Male
  Weight: 67 kg

DRUGS (14)
  1. LULLAN [Concomitant]
     Indication: SCHIZOPHRENIA
     Route: 048
     Dates: start: 20021109, end: 20110418
  2. FLUNITRAZEPAM [Concomitant]
     Indication: SCHIZOPHRENIA
     Route: 048
     Dates: start: 20070205, end: 20110511
  3. HALOPERIDOL [Suspect]
     Indication: SCHIZOPHRENIA
     Route: 042
     Dates: start: 20110514, end: 20110517
  4. LEVOTOMIN [Concomitant]
     Indication: SCHIZOPHRENIA
     Route: 048
     Dates: start: 20110402, end: 20110511
  5. PROMETHAZINE HCL [Concomitant]
     Indication: PARKINSONISM
     Route: 048
     Dates: start: 20041130, end: 20110511
  6. CEFMETAZON [Concomitant]
     Indication: BRONCHITIS
     Dosage: 2 G 1 PER 1 DAY
     Route: 041
     Dates: start: 20110514, end: 20110517
  7. HALOPERIDOL [Suspect]
     Indication: SCHIZOPHRENIA
     Route: 041
     Dates: start: 20110512
  8. HALOPERIDOL [Suspect]
     Route: 041
     Dates: start: 20110515
  9. HALOPERIDOL [Concomitant]
     Indication: SCHIZOPHRENIA
     Route: 048
     Dates: start: 20000913, end: 20110511
  10. RISPERDAL [Suspect]
     Indication: SCHIZOPHRENIA
     Route: 048
     Dates: start: 20110426, end: 20110511
  11. RISPERDAL [Suspect]
     Route: 048
     Dates: start: 20110419, end: 20110425
  12. HALOPERIDOL [Suspect]
     Route: 042
     Dates: start: 20110512, end: 20110513
  13. LEVOTOMIN [Concomitant]
     Route: 048
     Dates: start: 20000913, end: 20110401
  14. SEPAZON [Concomitant]
     Indication: SCHIZOPHRENIA
     Route: 048
     Dates: start: 20001018, end: 20110511

REACTIONS (4)
  - NEUROLEPTIC MALIGNANT SYNDROME [None]
  - BRONCHITIS [None]
  - TREATMENT NONCOMPLIANCE [None]
  - INCORRECT ROUTE OF DRUG ADMINISTRATION [None]
